FAERS Safety Report 8106233 (Version 15)
Quarter: 2012Q4

REPORT INFORMATION
  Report Type: 
  Country: DE (occurrence: DE)
  Receive Date: 20110825
  Receipt Date: 20120927
  Transmission Date: 20130627
  Serious: Yes (Hospitalization, Other)
  Sender: FDA-Public Use
  Company Number: PHHY2011DE46631

PATIENT
  Age: 36 None
  Sex: Female

DRUGS (7)
  1. EXTAVIA [Suspect]
     Indication: MULTIPLE SCLEROSIS
     Dosage: 62.5 ug, QOD
     Route: 058
     Dates: start: 20110517, end: 20110521
  2. EXTAVIA [Suspect]
     Dosage: 125 ug, QOD
     Route: 058
     Dates: start: 20110523, end: 201106
  3. EXTAVIA [Suspect]
     Dosage: 62.5 ug, QOD
     Route: 058
     Dates: start: 201106, end: 20110818
  4. EXTAVIA [Suspect]
     Dosage: 125 ug, QOD
     Route: 058
     Dates: start: 20110909, end: 20111227
  5. EXTAVIA [Suspect]
     Dosage: 1 ml (250 mcg), QOD
     Route: 058
     Dates: end: 20120629
  6. EXTAVIA [Suspect]
     Dosage: 125 ug, QOD
     Route: 058
     Dates: start: 20120109, end: 20120207
  7. IBUPROFEN [Concomitant]

REACTIONS (39)
  - Oophoritis [Recovering/Resolving]
  - Uterine cyst [Recovering/Resolving]
  - Abdominal pain [Recovered/Resolved]
  - Vomiting [Recovering/Resolving]
  - Nausea [Recovering/Resolving]
  - Cystitis [Recovering/Resolving]
  - Haematuria [Recovering/Resolving]
  - Pyrexia [Recovered/Resolved]
  - Multiple sclerosis relapse [Recovering/Resolving]
  - Paresis [Not Recovered/Not Resolved]
  - Hypokinesia [Unknown]
  - Hypoaesthesia [Recovering/Resolving]
  - Paraesthesia [Recovering/Resolving]
  - Infection [Recovered/Resolved]
  - Oral candidiasis [Recovered/Resolved]
  - Urinary tract infection [Not Recovered/Not Resolved]
  - Chest discomfort [Recovered/Resolved]
  - Feeling hot [Not Recovered/Not Resolved]
  - Hot flush [Unknown]
  - Sleep disorder [Recovering/Resolving]
  - Stress [Not Recovered/Not Resolved]
  - Migraine [Recovering/Resolving]
  - Pharyngitis [Recovered/Resolved]
  - Food allergy [Recovered/Resolved]
  - Urticaria [Recovered/Resolved]
  - Dysaesthesia [Not Recovered/Not Resolved]
  - White blood cell count increased [Unknown]
  - Nasopharyngitis [Unknown]
  - Chills [Not Recovered/Not Resolved]
  - Depression [Not Recovered/Not Resolved]
  - Mood swings [Recovering/Resolving]
  - Influenza [Not Recovered/Not Resolved]
  - Dyspnoea [Recovered/Resolved]
  - Influenza like illness [Recovered/Resolved]
  - Abdominal discomfort [Recovered/Resolved]
  - Headache [Not Recovered/Not Resolved]
  - Diarrhoea [Recovered/Resolved]
  - Pain [Recovering/Resolving]
  - Injection site erythema [Recovered/Resolved]
